FAERS Safety Report 10423005 (Version 1)
Quarter: 2014Q3

REPORT INFORMATION
  Report Type: Spontaneous
  Country: US (occurrence: US)
  Receive Date: 20140902
  Receipt Date: 20140902
  Transmission Date: 20150326
  Serious: Yes (Other)
  Sender: FDA-Public Use
  Company Number: PHEH2014US017109

PATIENT
  Sex: Female

DRUGS (5)
  1. ZETIA [Concomitant]
     Active Substance: EZETIMIBE
     Indication: BLOOD CHOLESTEROL ABNORMAL
     Dosage: UNK UKN, UNK
  2. BRILINTA [Concomitant]
     Active Substance: TICAGRELOR
     Indication: BLOOD CHOLESTEROL ABNORMAL
     Dosage: UNK
  3. LESCOL XL [Suspect]
     Active Substance: FLUVASTATIN SODIUM
     Indication: BLOOD CHOLESTEROL ABNORMAL
     Dosage: UNK
  4. LESCOL XL [Suspect]
     Active Substance: FLUVASTATIN SODIUM
     Dosage: UNK
  5. BRILINTA [Concomitant]
     Active Substance: TICAGRELOR
     Dosage: UNK

REACTIONS (4)
  - Liver function test abnormal [Unknown]
  - Gait disturbance [Unknown]
  - Blood triglycerides increased [Unknown]
  - Myocardial infarction [Unknown]

NARRATIVE: CASE EVENT DATE: 201404
